FAERS Safety Report 7304729-7 (Version None)
Quarter: 2011Q1

REPORT INFORMATION
  Report Type: 
  Country: None (occurrence: None)
  Receive Date: 20110222
  Receipt Date: 20110209
  Transmission Date: 20110831
  Serious: No
  Sender: FDA-Public Use
  Company Number: US-PFIZER INC-US-WYE-H14773310

PATIENT
  Sex: Female
  Weight: 65.3 kg

DRUGS (3)
  1. PRISTIQ [Suspect]
     Indication: DEPRESSION
     Dosage: 50.0 MG, 1X/DAY
     Route: 048
     Dates: start: 20100419
  2. INDERAL LA [Concomitant]
     Indication: HYPERTENSION
  3. ALPRAZOLAM [Suspect]
     Dosage: .5 MG, AS NEEDED
     Route: 065

REACTIONS (3)
  - NAUSEA [None]
  - VOMITING [None]
  - MALAISE [None]
